FAERS Safety Report 21927597 (Version 1)
Quarter: 2023Q1

REPORT INFORMATION
  Report Type: Spontaneous
  Country: US (occurrence: None)
  Receive Date: 20230130
  Receipt Date: 20230130
  Transmission Date: 20230417
  Serious: Yes (Disabling, Other)
  Sender: FDA-Public Use
  Company Number: None

PATIENT
  Age: 29 Year
  Sex: Female
  Weight: 45 kg

DRUGS (10)
  1. ARIPIPRAZOLE [Suspect]
     Active Substance: ARIPIPRAZOLE
     Indication: Bipolar disorder
     Dates: start: 20220425, end: 20220506
  2. TRINTELLIX [Concomitant]
     Active Substance: VORTIOXETINE HYDROBROMIDE
  3. ADDERALL [Concomitant]
     Active Substance: AMPHETAMINE ASPARTATE\AMPHETAMINE SULFATE\DEXTROAMPHETAMINE SACCHARATE\DEXTROAMPHETAMINE SULFATE
  4. propranlol [Concomitant]
  5. ATIVAN [Concomitant]
     Active Substance: LORAZEPAM
  6. IRON [Concomitant]
     Active Substance: IRON
  7. BIOTIN [Concomitant]
     Active Substance: BIOTIN
  8. MELATONIN [Concomitant]
     Active Substance: MELATONIN
  9. TYLENOL [Concomitant]
     Active Substance: ACETAMINOPHEN
  10. IBUPROFEN [Concomitant]
     Active Substance: IBUPROFEN

REACTIONS (11)
  - Vision blurred [None]
  - Diplopia [None]
  - Imperception [None]
  - Therapy cessation [None]
  - Headache [None]
  - Dizziness [None]
  - Dehydration [None]
  - Fatigue [None]
  - Gait inability [None]
  - Muscular weakness [None]
  - Hypertensive crisis [None]

NARRATIVE: CASE EVENT DATE: 20220503
